FAERS Safety Report 16711868 (Version 1)
Quarter: 2019Q3

REPORT INFORMATION
  Report Type: Spontaneous
  Country: IT (occurrence: IT)
  Receive Date: 20190816
  Receipt Date: 20190816
  Transmission Date: 20191004
  Serious: Yes (Hospitalization, Other)
  Sender: FDA-Public Use
  Company Number: IT-VERTEX PHARMACEUTICALS-2019-007531

PATIENT

DRUGS (16)
  1. CREON [Concomitant]
     Active Substance: PANCRELIPASE AMYLASE\PANCRELIPASE LIPASE\PANCRELIPASE PROTEASE
     Dosage: 11 + 17+ 11+ 17 CO
  2. SEROPAM [Concomitant]
     Active Substance: ESCITALOPRAM OXALATE
     Dosage: 20 MILLIGRAM, 1 CO
  3. PULMOZYME [Concomitant]
     Active Substance: DORNASE ALFA
     Dosage: 1 FL AEROSOL A DAY
  4. SELG [Concomitant]
     Dosage: 250 MILLIGRAM, 1 SATCHET AS NEEDED
  5. ORKAMBI [Suspect]
     Active Substance: IVACAFTOR\LUMACAFTOR
     Indication: CYSTIC FIBROSIS
     Dosage: 2 DOSAGE FORM, BID
     Route: 048
     Dates: start: 20160920
  6. SYMBICORT [Concomitant]
     Active Substance: BUDESONIDE\FORMOTEROL FUMARATE DIHYDRATE
     Dosage: 160/ 4,5 2 PUFF, BID
  7. NEXIUM [Concomitant]
     Active Substance: ESOMEPRAZOLE MAGNESIUM
     Dosage: 40 MILLIGRAM, 1 CO PER DAY
  8. DEURSIL [Concomitant]
     Active Substance: URSODIOL
     Dosage: 450 RR 1 CO, BID
  9. NORMIX [Concomitant]
     Active Substance: RIFAXIMIN
     Dosage: 2 CO * 3 DIE FOR 15 DAYS PER MONTH FOR 2 MONTHS
  10. CAYSTON [Concomitant]
     Active Substance: AZTREONAM
     Dosage: 1 FL AEROSOL, TID IN ALTERNATE MONTHS
  11. COLOBREATHE [Concomitant]
     Active Substance: COLISTIMETHATE SODIUM
     Dosage: 1 INHALED * 2 EVERY OTHER MONTH, 2-3 TIMES A DAY
  12. CALCIUM CARBONATE. [Concomitant]
     Active Substance: CALCIUM CARBONATE
     Dosage: 1 GR 1 CO
  13. HYANEB [Concomitant]
     Dosage: 1/2 FL AND 3CC OF SF, 2 TIMES DIE
  14. INSULIN [INSULIN BOVINE] [Concomitant]
     Dosage: READY FOR MEALS * 3 DIE
  15. RIOPAN [PIROXICAM] [Concomitant]
     Active Substance: PIROXICAM
  16. VENTOLINE [SALBUTAMOL] [Concomitant]
     Active Substance: ALBUTEROL SULFATE
     Dosage: 2 PUFF AS NEEDED

REACTIONS (5)
  - Infectious pleural effusion [Unknown]
  - Volvulus [Unknown]
  - Respiratory failure [Not Recovered/Not Resolved]
  - Infective pulmonary exacerbation of cystic fibrosis [Unknown]
  - Pneumonia [Unknown]

NARRATIVE: CASE EVENT DATE: 2019
